FAERS Safety Report 9094528 (Version 5)
Quarter: 2014Q3

REPORT INFORMATION
  Report Type: Spontaneous
  Country: JP (occurrence: JP)
  Receive Date: 20130220
  Receipt Date: 20140828
  Transmission Date: 20150326
  Serious: Yes (Other)
  Sender: FDA-Public Use
  Company Number: JP-009507513-1302JPN000790

PATIENT
  Age: 63 Year
  Sex: Female
  Weight: 55 kg

DRUGS (5)
  1. PEGINTRON [Suspect]
     Active Substance: PEGINTERFERON ALFA-2B
     Indication: CHRONIC HEPATITIS C
     Dosage: 80 MICROGRAM, QW
     Route: 058
     Dates: start: 20121009, end: 20121024
  2. ISONIAZID. [Suspect]
     Active Substance: ISONIAZID
     Dosage: 300 MG, QD, FORMULATION:POR;
     Route: 048
     Dates: start: 20121031
  3. TELAVIC [Suspect]
     Active Substance: TELAPREVIR
     Indication: CHRONIC HEPATITIS C
     Dosage: 1500 MG, QD
     Route: 048
     Dates: start: 20121009, end: 20121031
  4. REBETOL [Suspect]
     Active Substance: RIBAVIRIN
     Indication: CHRONIC HEPATITIS C
     Dosage: 400 MG, DAILY
     Route: 048
     Dates: start: 20121009, end: 20121031
  5. ASPARA K [Concomitant]
     Active Substance: POTASSIUM ASPARTATE
     Indication: HYPOKALAEMIA
     Dosage: 1800 MG,QD
     Route: 048

REACTIONS (4)
  - Tuberculous pleurisy [Recovering/Resolving]
  - Pulmonary tuberculosis [Unknown]
  - Tuberculous pleurisy [Unknown]
  - Pulmonary tuberculoma [Not Recovered/Not Resolved]

NARRATIVE: CASE EVENT DATE: 20121031
